FAERS Safety Report 7077829-7 (Version None)
Quarter: 2010Q4

REPORT INFORMATION
  Report Type: 
  Country: None (occurrence: None)
  Receive Date: 20101101
  Receipt Date: 20101020
  Transmission Date: 20110411
  Serious: Yes (Hospitalization)
  Sender: FDA-Public Use
  Company Number: PHHY2010JP72709

PATIENT
  Age: 64 Year
  Sex: Male
  Weight: 59 kg

DRUGS (2)
  1. STARSIS [Suspect]
     Indication: TYPE 2 DIABETES MELLITUS
     Dosage: 180 MG PER DAY
     Route: 048
     Dates: start: 20090423, end: 20100125
  2. METFORMIN HYDROCHLORIDE [Concomitant]
     Dosage: 750 MG
     Dates: end: 20100125

REACTIONS (4)
  - GASTRECTOMY [None]
  - GASTRIC CANCER [None]
  - LARGE INTESTINE CARCINOMA [None]
  - SIGMOIDECTOMY [None]
